FAERS Safety Report 15451098 (Version 1)
Quarter: 2018Q4

REPORT INFORMATION
  Report Type: Report from Study
  Country: None (occurrence: GT)
  Receive Date: 20181001
  Receipt Date: 20181001
  Transmission Date: 20190204
  Serious: Yes (Death)
  Sender: FDA-Public Use
  Company Number: GT-ABBVIE-18S-069-2503628-00

PATIENT
  Age: 32 Year
  Sex: Male

DRUGS (2)
  1. ZEMPLAR [Suspect]
     Active Substance: PARICALCITOL
     Indication: CHRONIC KIDNEY DISEASE
  2. ZEMPLAR [Suspect]
     Active Substance: PARICALCITOL
     Indication: HYPERPARATHYROIDISM SECONDARY
     Route: 030
     Dates: start: 20160302

REACTIONS (3)
  - Cardio-respiratory arrest [Fatal]
  - Malaise [Fatal]
  - Chest pain [Fatal]

NARRATIVE: CASE EVENT DATE: 20180906
